FAERS Safety Report 4829112-5 (Version None)
Quarter: 2005Q4

REPORT INFORMATION
  Report Type: 
  Country: None (occurrence: None)
  Receive Date: 20051116
  Receipt Date: 20051104
  Transmission Date: 20060501
  Serious: Yes (Disabling)
  Sender: FDA-Public Use
  Company Number: FR-BRISTOL-MYERS SQUIBB COMPANY-13170196

PATIENT
  Age: 65 Year
  Sex: Male

DRUGS (4)
  1. ELISOR TABS 20 MG [Suspect]
     Indication: HYPERCHOLESTEROLAEMIA
     Route: 048
     Dates: start: 20050401, end: 20051001
  2. FLECAINIDE ACETATE [Concomitant]
  3. PREVISCAN [Concomitant]
  4. ATENOLOL [Concomitant]

REACTIONS (7)
  - BLOOD CREATINE PHOSPHOKINASE INCREASED [None]
  - CHEST PAIN [None]
  - DIFFICULTY IN WALKING [None]
  - MUSCLE SPASMS [None]
  - PYREXIA [None]
  - TENDON DISORDER [None]
  - WEIGHT DECREASED [None]
